FAERS Safety Report 4676707-8 (Version None)
Quarter: 2005Q2

REPORT INFORMATION
  Report Type: 
  Country: None (occurrence: None)
  Receive Date: 20050527
  Receipt Date: 20050519
  Transmission Date: 20051028
  Serious: Yes (Other)
  Sender: FDA-Public Use
  Company Number: US-JNJFOC-20050506092

PATIENT
  Age: 84 Year
  Sex: Female

DRUGS (3)
  1. EXTRA STRENGTH TYLENOL [Suspect]
  2. EXTRA STRENGTH TYLENOL [Suspect]
     Indication: OSTEOARTHRITIS
  3. UNSPECIFIED MEDICATIONS [Concomitant]

REACTIONS (2)
  - HALLUCINATION, VISUAL [None]
  - SOMNOLENCE [None]
